FAERS Safety Report 8395530-4 (Version None)
Quarter: 2012Q2

REPORT INFORMATION
  Report Type: 
  Country: None (occurrence: None)
  Receive Date: 20120530
  Receipt Date: 20110613
  Transmission Date: 20120825
  Serious: No
  Sender: FDA-Public Use
  Company Number: US-GLAXOSMITHKLINE-A0931324A

PATIENT
  Age: 73 Year
  Sex: Female

DRUGS (10)
  1. ALBUTEROL [Concomitant]
  2. VITAMIN B COMPLEX CAP [Concomitant]
  3. ADVAIR DISKUS 100/50 [Concomitant]
  4. VENTOLIN [Suspect]
     Indication: PRODUCT USED FOR UNKNOWN INDICATION
     Dosage: 2PUFF AS REQUIRED
     Route: 055
  5. SPIRIVA [Concomitant]
  6. XANAX [Concomitant]
  7. CALTRATE+VITAMIN D [Concomitant]
  8. VICODIN [Concomitant]
  9. VITAMIN D [Concomitant]
  10. FISH OIL [Concomitant]

REACTIONS (2)
  - DRUG INEFFECTIVE [None]
  - PRODUCT QUALITY ISSUE [None]
